FAERS Safety Report 10978633 (Version 1)
Quarter: 2015Q2

REPORT INFORMATION
  Report Type: Spontaneous
  Country: JP (occurrence: JP)
  Receive Date: 20150402
  Receipt Date: 20150402
  Transmission Date: 20150821
  Serious: Yes (Death)
  Sender: FDA-Public Use
  Company Number: JP-TEVA-551289ISR

PATIENT
  Sex: Male
  Weight: 70 kg

DRUGS (17)
  1. NEXIUM [Concomitant]
     Active Substance: ESOMEPRAZOLE MAGNESIUM
     Indication: PROPHYLAXIS
     Dosage: 20 MILLIGRAM DAILY;
     Route: 048
     Dates: start: 20141126
  2. SENNARIDE [Concomitant]
     Active Substance: SENNOSIDES A AND B
     Indication: CONSTIPATION
     Dosage: 24 MILLIGRAM DAILY;
     Route: 048
     Dates: start: 20141112
  3. DAIKENCHUTO [Concomitant]
     Active Substance: HERBALS
     Indication: DYSCHEZIA
     Dosage: 22.5 GRAM DAILY;
     Route: 048
     Dates: start: 20141119
  4. FENTOS [Concomitant]
     Active Substance: FENTANYL
     Indication: CANCER PAIN
     Dosage: 4 MILLIGRAM DAILY;
     Route: 062
     Dates: start: 20141114, end: 20141123
  5. FENTOS [Concomitant]
     Active Substance: FENTANYL
     Dosage: 8 MILLIGRAM DAILY;
     Route: 062
     Dates: start: 20141126, end: 20141204
  6. LOXONIN [Concomitant]
     Active Substance: LOXOPROFEN SODIUM
     Indication: ANALGESIC THERAPY
     Dosage: 180 MILLIGRAM DAILY;
     Route: 065
     Dates: start: 20141126
  7. MAGMITT [Concomitant]
     Active Substance: MAGNESIUM OXIDE
     Indication: CONSTIPATION
     Dosage: 330 MILLIGRAM DAILY;
     Route: 048
     Dates: start: 20141112
  8. EPIRENAT [Concomitant]
     Active Substance: VALPROATE SODIUM
     Indication: RESTLESSNESS
     Dosage: 9 ML DAILY;
     Route: 048
     Dates: start: 20141110, end: 20141130
  9. E-FEN BUCCAL [Suspect]
     Active Substance: FENTANYL CITRATE
     Indication: BREAKTHROUGH PAIN
     Dosage: 0-100 MICROGRAM
     Route: 002
     Dates: start: 20141118, end: 20141130
  10. ADEFURONIC [Concomitant]
     Active Substance: DICLOFENAC SODIUM
     Indication: CANCER PAIN
     Dosage: 25 MILLIGRAM DAILY;
     Route: 054
     Dates: start: 20141117, end: 20141117
  11. LOXONIN [Concomitant]
     Active Substance: LOXOPROFEN SODIUM
     Indication: CANCER PAIN
     Dosage: 60 MILLIGRAM DAILY;
     Route: 048
     Dates: start: 2014
  12. ZOLPIDEM TARTRATE. [Concomitant]
     Active Substance: ZOLPIDEM TARTRATE
     Indication: INSOMNIA
     Dosage: 5 MILLIGRAM DAILY;
     Route: 048
     Dates: start: 20141109, end: 20141116
  13. FENTOS [Concomitant]
     Active Substance: FENTANYL
     Dosage: 6 MILLIGRAM DAILY;
     Route: 062
     Dates: start: 20141124, end: 20141125
  14. RINDERON V [Concomitant]
     Active Substance: BETAMETHASONE VALERATE
     Indication: MALAISE
     Dosage: .5 MILLIGRAM DAILY;
     Route: 048
     Dates: start: 20141126
  15. ROZEREM [Concomitant]
     Active Substance: RAMELTEON
     Indication: INSOMNIA
     Dosage: 8 MILLIGRAM DAILY;
     Route: 048
     Dates: start: 20141106, end: 20141203
  16. VOLTAREN [Concomitant]
     Active Substance: DICLOFENAC SODIUM
     Indication: CANCER PAIN
     Dosage: 25 MILLIGRAM DAILY;
     Route: 054
     Dates: start: 20141117
  17. UNDEPRE [Concomitant]
     Active Substance: TRAZODONE HYDROCHLORIDE
     Indication: PSYCHOTIC DISORDER
     Dosage: 25 MILLIGRAM DAILY;
     Route: 048
     Dates: start: 20141126

REACTIONS (2)
  - Disease progression [Fatal]
  - Colorectal cancer [Fatal]
